FAERS Safety Report 8287331-2 (Version None)
Quarter: 2012Q2

REPORT INFORMATION
  Report Type: 
  Country: None (occurrence: None)
  Receive Date: 20120416
  Receipt Date: 20110405
  Transmission Date: 20120825
  Serious: Yes (Hospitalization)
  Sender: FDA-Public Use
  Company Number: IT-CELGENEUS-083-50794-11031671

PATIENT

DRUGS (6)
  1. MYCOSTATIN [Concomitant]
     Dosage: 20 MILLILITER
     Route: 048
     Dates: start: 20100329, end: 20110404
  2. PREDNISONE TAB [Concomitant]
     Dosage: 12.5 MILLIGRAM
     Route: 048
     Dates: start: 20100329, end: 20110404
  3. ALLOPURINOL [Concomitant]
     Dosage: 300 MILLIGRAM
     Route: 048
     Dates: start: 20100329, end: 20110404
  4. VIDAZA [Suspect]
     Indication: ACUTE MYELOID LEUKAEMIA
     Dosage: 136 MILLIGRAM
     Route: 058
     Dates: start: 20100810, end: 20110203
  5. ADALAT [Concomitant]
     Dosage: 30 MILLIGRAM
     Route: 048
     Dates: start: 20100329, end: 20110404
  6. LANSOPRAZOLE [Concomitant]
     Dosage: 30 MILLIGRAM
     Route: 048
     Dates: start: 20100329, end: 20110404

REACTIONS (3)
  - CEREBROVASCULAR ACCIDENT [None]
  - SPLENIC INFARCTION [None]
  - INTESTINAL ISCHAEMIA [None]
